FAERS Safety Report 7040419-6 (Version None)
Quarter: 2010Q4

REPORT INFORMATION
  Report Type: 
  Country: None (occurrence: None)
  Receive Date: 20101008
  Receipt Date: 20101008
  Transmission Date: 20110411
  Serious: Yes (Disabling)
  Sender: FDA-Public Use
  Company Number: None

PATIENT
  Sex: Female
  Weight: 68.0396 kg

DRUGS (2)
  1. PERRIGO DESONIDE CREAM .05% [Suspect]
     Indication: DERMATITIS
     Dosage: THIN LAYER AM PM AS NEEDED
     Dates: start: 20060101
  2. PERRIGO DESONIDE CREAM .05% [Suspect]
     Indication: SEBACEOUS GLAND DISORDER
     Dosage: THIN LAYER AM PM AS NEEDED
     Dates: start: 20060101

REACTIONS (7)
  - CAPILLARY FRAGILITY [None]
  - DRUG DEPENDENCE [None]
  - ERYTHEMA [None]
  - IMPAIRED HEALING [None]
  - SKIN ATROPHY [None]
  - SKIN BURNING SENSATION [None]
  - SKIN DISORDER [None]
